FAERS Safety Report 21271510 (Version 1)
Quarter: 2022Q3

REPORT INFORMATION
  Report Type: Spontaneous
  Country: GT (occurrence: GT)
  Receive Date: 20220830
  Receipt Date: 20220830
  Transmission Date: 20221026
  Serious: Yes (Death, Hospitalization, Other)
  Sender: FDA-Public Use
  Company Number: GT-SA-SAC20220826001668

PATIENT
  Age: 60 Year
  Sex: Male

DRUGS (1)
  1. LANTUS [Suspect]
     Active Substance: INSULIN GLARGINE
     Indication: Type 2 diabetes mellitus
     Dosage: 5 IU, QD
     Route: 058
     Dates: start: 2021

REACTIONS (6)
  - Death [Fatal]
  - Renal failure [Unknown]
  - Cerebrovascular accident [Unknown]
  - Coma [Unknown]
  - Hospitalisation [Unknown]
  - Diabetic complication [Unknown]

NARRATIVE: CASE EVENT DATE: 20220201
